FAERS Safety Report 9911213 (Version 1)
Quarter: 2014Q1

REPORT INFORMATION
  Report Type: Spontaneous
  Country: US (occurrence: US)
  Receive Date: 20140219
  Receipt Date: 20140219
  Transmission Date: 20141002
  Serious: Yes (Other)
  Sender: FDA-Public Use
  Company Number: US-SA-2014SA019588

PATIENT
  Age: 61 Year
  Sex: Female

DRUGS (1)
  1. AMBIEN [Suspect]
     Indication: SLEEP DISORDER
     Route: 048
     Dates: start: 2006, end: 2006

REACTIONS (3)
  - Swollen tongue [Recovered/Resolved]
  - Somnambulism [Recovered/Resolved]
  - Emotional distress [Recovered/Resolved]
